FAERS Safety Report 19237501 (Version 1)
Quarter: 2021Q2

REPORT INFORMATION
  Report Type: Spontaneous
  Country: US (occurrence: US)
  Receive Date: 20210510
  Receipt Date: 20210510
  Transmission Date: 20210717
  Serious: Yes (Other)
  Sender: FDA-Public Use
  Company Number: None

PATIENT
  Age: 7 Year
  Sex: Female
  Weight: 34.5 kg

DRUGS (1)
  1. SAPROPTERIN [Suspect]
     Active Substance: SAPROPTERIN
     Indication: PHENYLKETONURIA
     Route: 048
     Dates: start: 202011

REACTIONS (2)
  - Product substitution issue [None]
  - Amino acid level increased [None]

NARRATIVE: CASE EVENT DATE: 20210310
